FAERS Safety Report 11696749 (Version 5)
Quarter: 2016Q1

REPORT INFORMATION
  Report Type: Report from Study
  Country: HR (occurrence: HR)
  Receive Date: 20151104
  Receipt Date: 20160112
  Transmission Date: 20160525
  Serious: Yes (Death, Life-Threatening, Hospitalization, Other)
  Sender: FDA-Public Use
  Company Number: HR-ABBVIE-15P-216-1491850-00

PATIENT
  Sex: Male

DRUGS (1)
  1. DUODOPA [Suspect]
     Active Substance: CARBIDOPA\LEVODOPA
     Indication: PRODUCT USED FOR UNKNOWN INDICATION
     Route: 050

REACTIONS (21)
  - Decreased appetite [Unknown]
  - Dysphagia [Unknown]
  - General physical health deterioration [Fatal]
  - Pneumonia [Unknown]
  - Faeces discoloured [Recovered/Resolved]
  - Abdominal pain [Unknown]
  - C-reactive protein increased [Unknown]
  - Ulcer [Unknown]
  - Fibrin D dimer increased [Unknown]
  - Respiratory arrest [Unknown]
  - Sopor [Unknown]
  - Weight decreased [Unknown]
  - Device occlusion [Unknown]
  - Laboratory test abnormal [Unknown]
  - Cardio-respiratory arrest [Unknown]
  - Pyrexia [Unknown]
  - Mechanical ventilation [Unknown]
  - General physical health deterioration [Unknown]
  - Muscle atrophy [Unknown]
  - Stoma site haemorrhage [Recovered/Resolved]
  - Mobility decreased [Unknown]

NARRATIVE: CASE EVENT DATE: 20151028
